FAERS Safety Report 22230893 (Version 1)
Quarter: 2023Q2

REPORT INFORMATION
  Report Type: Spontaneous
  Country: BR (occurrence: BR)
  Receive Date: 20230420
  Receipt Date: 20230420
  Transmission Date: 20230721
  Serious: Yes (Hospitalization)
  Sender: FDA-Public Use
  Company Number: BR-BoehringerIngelheim-2023-BI-231561

PATIENT
  Age: 48 Year
  Sex: Female

DRUGS (4)
  1. ATROVENT [Suspect]
     Active Substance: IPRATROPIUM BROMIDE
     Indication: Product used for unknown indication
     Route: 055
  2. FENOTEROL HYDROBROMIDE\IPRATROPIUM BROMIDE [Suspect]
     Active Substance: FENOTEROL HYDROBROMIDE\IPRATROPIUM BROMIDE
     Indication: Asthma
     Dosage: USES 24H, EXCEPT WHEN IN THE SHOWER
  3. BEROTEC [Suspect]
     Active Substance: FENOTEROL HYDROBROMIDE
     Indication: Product used for unknown indication
     Dosage: AEROSOL
     Route: 055
  4. ALBUTEROL [Suspect]
     Active Substance: ALBUTEROL
     Indication: Product used for unknown indication

REACTIONS (10)
  - Bronchitis [Unknown]
  - Nasopharyngitis [Unknown]
  - Illness [Unknown]
  - Crying [Unknown]
  - Expired product administered [Unknown]
  - COVID-19 [Unknown]
  - Illness [Unknown]
  - Depression [Unknown]
  - Emotional distress [Unknown]
  - Drug ineffective [Unknown]
